FAERS Safety Report 7906056-3 (Version None)
Quarter: 2011Q4

REPORT INFORMATION
  Report Type: 
  Country: None (occurrence: None)
  Receive Date: 20111110
  Receipt Date: 20111110
  Transmission Date: 20120403
  Serious: Yes (Life-Threatening, Other)
  Sender: FDA-Public Use
  Company Number: None

PATIENT
  Age: 50 Year
  Sex: Male
  Weight: 90.718 kg

DRUGS (2)
  1. INCIVEK [Suspect]
     Indication: DISEASE RECURRENCE
     Dosage: 375 MG
     Route: 048
     Dates: start: 20110901, end: 20111021
  2. INCIVEK [Suspect]
     Indication: HEPATITIS C
     Dosage: 375 MG
     Route: 048
     Dates: start: 20110901, end: 20111021

REACTIONS (2)
  - RENAL FAILURE ACUTE [None]
  - PANCYTOPENIA [None]
